FAERS Safety Report 7820667-5 (Version None)
Quarter: 2011Q4

REPORT INFORMATION
  Report Type: 
  Country: None (occurrence: None)
  Receive Date: 20111013
  Receipt Date: 20110930
  Transmission Date: 20120403
  Serious: Yes (Hospitalization, Other)
  Sender: FDA-Public Use
  Company Number: AUR-APL-2010-00652

PATIENT
  Age: 33 Year
  Sex: Male

DRUGS (10)
  1. STAVUDINE [Suspect]
     Indication: HIV INFECTION
     Dates: start: 19991001
  2. DIDANOSINE [Suspect]
     Indication: HIV INFECTION
     Dates: start: 19981001
  3. EFAVIRENZ [Suspect]
     Indication: HIV INFECTION
     Dates: start: 20020101
  4. LOPINAVIR (LOPINAVIR) [Suspect]
     Indication: HIV INFECTION
     Dates: start: 20030301
  5. RITONAVIR [Suspect]
     Indication: HIV INFECTION
     Dates: start: 20030301
  6. ZIDOVUDINE [Suspect]
     Indication: HIV INFECTION
     Dates: start: 19981001
  7. NELFINAVIR MESYLATE [Suspect]
     Indication: HIV INFECTION
     Dates: start: 19991001
  8. SAQUINAVIR (SAQUINAVIR) [Suspect]
     Indication: HIV INFECTION
     Dates: start: 19981201
  9. LAMIVUDINE [Suspect]
     Indication: HIV INFECTION
     Dates: start: 19991001
  10. TENOFOVIR (TENOFOVIR) [Suspect]
     Indication: HIV INFECTION
     Dates: start: 20030301

REACTIONS (3)
  - OSTEONECROSIS [None]
  - GASTROINTESTINAL DISORDER [None]
  - TREATMENT FAILURE [None]
